FAERS Safety Report 22083074 (Version 2)
Quarter: 2023Q1

REPORT INFORMATION
  Report Type: Spontaneous
  Country: GB (occurrence: GB)
  Receive Date: 20230310
  Receipt Date: 20230324
  Transmission Date: 20230418
  Serious: Yes (Other)
  Sender: FDA-Public Use
  Company Number: None

PATIENT
  Age: 70 Year
  Sex: Male
  Weight: 104 kg

DRUGS (23)
  1. BUPRENORPHINE [Suspect]
     Active Substance: BUPRENORPHINE
     Indication: Product used for unknown indication
     Route: 065
     Dates: start: 20161202
  2. CALCIUM CARBONATE\SODIUM ALGINATE\SODIUM BICARBONATE [Concomitant]
     Active Substance: CALCIUM CARBONATE\SODIUM ALGINATE\SODIUM BICARBONATE
     Indication: Product used for unknown indication
     Dosage: 10-20MLS FOUR TIMES DAILY AS NEEDED
     Route: 065
     Dates: start: 20211012
  3. CALCIUM CARBONATE\SODIUM ALGINATE\SODIUM BICARBONATE [Concomitant]
     Active Substance: CALCIUM CARBONATE\SODIUM ALGINATE\SODIUM BICARBONATE
     Indication: Product used for unknown indication
     Dosage: 20MILLILITRE,4/DAY
     Route: 065
     Dates: start: 20211012
  4. ASPIRIN [Concomitant]
     Active Substance: ASPIRIN
     Indication: Product used for unknown indication
     Dosage: TAKE ONE DAILY
     Route: 065
     Dates: start: 20170907
  5. ATORVASTATIN [Concomitant]
     Active Substance: ATORVASTATIN
     Indication: Product used for unknown indication
     Dosage: TAKE ONE TABLET AT NIGHT / 1 DOSAGE FORM, 1/DAY
     Route: 048
     Dates: start: 20170530
  6. BETAMETHASONE DIPROPIONATE [Concomitant]
     Active Substance: BETAMETHASONE DIPROPIONATE
     Indication: Product used for unknown indication
     Dosage: OFF LICENCE USE: 2 DROPS TO EACH EAR ONCE WEEKL...
     Route: 065
     Dates: start: 20230120
  7. BETAMETHASONE DIPROPIONATE [Concomitant]
     Active Substance: BETAMETHASONE DIPROPIONATE
     Indication: Product used for unknown indication
     Dosage: 4 DROP,1/WEEK
     Route: 065
     Dates: start: 20230120
  8. BISOPROLOL [Concomitant]
     Active Substance: BISOPROLOL
     Indication: Product used for unknown indication
     Dosage: TAKE ONE TABLET IN THE MORNING/ 1 DOSAGE FORM, 1/DAY
     Route: 048
     Dates: start: 20170530
  9. BUPRENORPHINE [Concomitant]
     Active Substance: BUPRENORPHINE
     Indication: Product used for unknown indication
     Dosage: APPLY ONE PATCH TO DRY SKIN AND CHANGE ONCE A WEEK / 1 DOSAGE FORM,1/WEEK
     Route: 062
     Dates: start: 20161130
  10. CIPROFLOXACIN [Concomitant]
     Active Substance: CIPROFLOXACIN
     Indication: Product used for unknown indication
     Dosage: UPPER UTI, DIAGNOSED CLINICALLY - EMPIRIC OPTIO...
     Route: 065
     Dates: start: 20221213, end: 20221220
  11. CIPROFLOXACIN [Concomitant]
     Active Substance: CIPROFLOXACIN
     Indication: Product used for unknown indication
     Dosage: UNKNOWN
     Route: 065
     Dates: start: 20221213, end: 20221220
  12. BECLOMETHASONE DIPROPIONATE [Concomitant]
     Active Substance: BECLOMETHASONE DIPROPIONATE
     Indication: Product used for unknown indication
     Dosage: 1 SPRAY ONTO SKIN / 1 DOSAGE FORM
     Route: 065
     Dates: start: 20131011
  13. COCODAMOL [Concomitant]
     Active Substance: ACETAMINOPHEN\CODEINE PHOSPHATE
     Indication: Product used for unknown indication
     Dosage: TAKE 1 OR 2 CAPSULES 4 TIMES/DAY WHEN REQUIRED
     Route: 048
     Dates: start: 20170826
  14. COCODAMOL [Concomitant]
     Active Substance: ACETAMINOPHEN\CODEINE PHOSPHATE
     Indication: Product used for unknown indication
     Dosage: 2 DOSAGE FORM, 4/DAY
     Route: 048
     Dates: start: 20170826
  15. FLUTICASONE FUROATE [Concomitant]
     Active Substance: FLUTICASONE FUROATE
     Indication: Product used for unknown indication
     Dosage: USE 2 SPRAYS EACH NOSTRIL ONCE DAILY/ 4 DOSAGE FORM, 1/DAY
     Route: 045
     Dates: start: 20230120
  16. GABAPENTIN [Concomitant]
     Active Substance: GABAPENTIN
     Indication: Product used for unknown indication
     Dosage: TAKE ONE CAPSULE THREE TIMES A DAY
     Route: 048
     Dates: start: 20130419
  17. MEBEVERINE HYDROCHLORIDE [Concomitant]
     Active Substance: MEBEVERINE HYDROCHLORIDE
     Indication: Product used for unknown indication
     Dosage: TAKE ONE TABLET THREE TIMES DAY/ 1 DOSAGE FORM, 3/DAY
     Route: 048
     Dates: start: 20161210
  18. MOVICOL [Concomitant]
     Active Substance: POLYETHYLENE GLYCOL 3350\POTASSIUM CHLORIDE\SODIUM BICARBONATE\SODIUM CHLORIDE
     Indication: Product used for unknown indication
     Dosage: TAKE ONE SACHET UP TO TWICE A DAY WHEN REQUIRED / 1 DOSAGE FORM, 2/DAY
     Route: 065
     Dates: start: 20170609
  19. OMEPRAZOLE [Concomitant]
     Active Substance: OMEPRAZOLE
     Indication: Product used for unknown indication
     Dosage: TAKE TWO CAPSULE IN THE MORNING / 2 DOSAGE FORM, 1/DAY
     Route: 048
     Dates: start: 20170530
  20. RAMIPRIL [Concomitant]
     Active Substance: RAMIPRIL
     Indication: Product used for unknown indication
     Dosage: TAKE ONE DAILY / 1 DOSAGE FORM, 1/DAY
     Route: 065
     Dates: start: 20170530
  21. SERTRALINE [Concomitant]
     Active Substance: SERTRALINE HYDROCHLORIDE
     Indication: Product used for unknown indication
     Dosage: TAKE ONE TABLET EACH MORNING/ 1 DOSAGE FORM, 1/DAY
     Route: 048
     Dates: start: 20220725
  22. TAMSULOSIN HYDROCHLORIDE [Concomitant]
     Active Substance: TAMSULOSIN HYDROCHLORIDE
     Indication: Product used for unknown indication
     Dosage: TAKE ONE DAILY FOR BLADDER OUTFLOW SYMPTOMS / B...
     Route: 065
     Dates: start: 20220304
  23. TAMSULOSIN HYDROCHLORIDE [Concomitant]
     Active Substance: TAMSULOSIN HYDROCHLORIDE
     Indication: Product used for unknown indication
     Dosage: TAKE ONE DAILY FOR BLADDER OUTFLOW SYMPTOMS / 1 DOSAGE FORM, 1/DAY
     Route: 065
     Dates: start: 20220304

REACTIONS (2)
  - Nightmare [Unknown]
  - Abnormal dreams [Unknown]
